FAERS Safety Report 4870042-0 (Version None)
Quarter: 2005Q4

REPORT INFORMATION
  Report Type: 
  Country: None (occurrence: None)
  Receive Date: 20051223
  Receipt Date: 20050203
  Transmission Date: 20060501
  Serious: Yes (Hospitalization)
  Sender: FDA-Public Use
  Company Number: 2005BI002516

PATIENT
  Age: 40 Year
  Sex: Female
  Weight: 56.6996 kg

DRUGS (5)
  1. AVONEX [Suspect]
     Indication: MULTIPLE SCLEROSIS
     Dosage: 30 UG; QW; IM
     Route: 030
     Dates: start: 20010101, end: 20040101
  2. AVONEX [Suspect]
     Indication: MULTIPLE SCLEROSIS
     Dosage: 30 UG; QW; IM
     Route: 030
     Dates: start: 20040101, end: 20040101
  3. AVONEX [Suspect]
     Indication: MULTIPLE SCLEROSIS
     Dosage: 30 UG; QW; IM
     Route: 030
     Dates: start: 20040901
  4. FIBERCON [Concomitant]
  5. XANAX [Concomitant]

REACTIONS (7)
  - ARTIFICIAL MENOPAUSE [None]
  - BENIGN UTERINE NEOPLASM [None]
  - BRONCHITIS [None]
  - COAGULOPATHY [None]
  - DYSPEPSIA [None]
  - HEREDITARY DISORDER [None]
  - NASOPHARYNGITIS [None]
